FAERS Safety Report 7246698-4 (Version None)
Quarter: 2011Q1

REPORT INFORMATION
  Report Type: 
  Country: None (occurrence: None)
  Receive Date: 20110127
  Receipt Date: 20091013
  Transmission Date: 20110831
  Serious: No
  Sender: FDA-Public Use
  Company Number: 2009BI033181

PATIENT
  Sex: Female

DRUGS (2)
  1. AVONEX [Concomitant]
     Indication: MULTIPLE SCLEROSIS
     Route: 030
  2. TYSABRI [Suspect]
     Indication: MULTIPLE SCLEROSIS
     Route: 042
     Dates: start: 20070522

REACTIONS (11)
  - ARTHRITIS [None]
  - FALL [None]
  - HEAD INJURY [None]
  - MUSCULAR WEAKNESS [None]
  - GENERAL SYMPTOM [None]
  - CONSTIPATION [None]
  - OROPHARYNGEAL PAIN [None]
  - RED BLOOD CELL COUNT DECREASED [None]
  - COUGH [None]
  - HEADACHE [None]
  - NASOPHARYNGITIS [None]
